APPROVED DRUG PRODUCT: NUTRACORT
Active Ingredient: HYDROCORTISONE
Strength: 1%
Dosage Form/Route: CREAM;TOPICAL
Application: A080442 | Product #003
Applicant: BAUSCH HEALTH AMERICAS INC
Approved: Approved Prior to Jan 1, 1982 | RLD: No | RS: No | Type: DISCN